FAERS Safety Report 11009395 (Version 2)
Quarter: 2015Q2

REPORT INFORMATION
  Report Type: Spontaneous
  Country: US (occurrence: US)
  Receive Date: 20150410
  Receipt Date: 20150512
  Transmission Date: 20150821
  Serious: Yes (Other)
  Sender: FDA-Public Use
  Company Number: US-PFIZER INC-2015117890

PATIENT
  Age: 50 Year
  Sex: Female
  Weight: 113 kg

DRUGS (2)
  1. GENOTROPIN [Suspect]
     Active Substance: SOMATROPIN
     Dosage: 0.3 MG, UNK
     Route: 058
     Dates: start: 201501
  2. GENOTROPIN MQ [Suspect]
     Active Substance: SOMATROPIN
     Indication: GROWTH HORMONE DEFICIENCY
     Dosage: 0.3 MG, DAILY
     Route: 058

REACTIONS (6)
  - Injection site induration [Unknown]
  - Injection site haematoma [Unknown]
  - Venous injury [Unknown]
  - Incorrect route of drug administration [Unknown]
  - Injection site haemorrhage [Recovered/Resolved]
  - Injection site swelling [Unknown]

NARRATIVE: CASE EVENT DATE: 201504
